FAERS Safety Report 25522827 (Version 2)
Quarter: 2025Q3

REPORT INFORMATION
  Report Type: Report from Study
  Country: US (occurrence: US)
  Receive Date: 20250707
  Receipt Date: 20250714
  Transmission Date: 20251021
  Serious: Yes (Death, Other)
  Sender: ALEXION PHARMACEUTICALS
  Company Number: US-AstraZeneca-CH-00904363A

PATIENT
  Sex: Female

DRUGS (5)
  1. BUDESONIDE\FORMOTEROL\GLYCOPYRRONIUM [Suspect]
     Active Substance: BUDESONIDE\FORMOTEROL\GLYCOPYRRONIUM
     Dosage: 2 DOSAGE FORM, BID
     Dates: start: 20240717, end: 20250621
  2. ZOVIRAX [Concomitant]
     Active Substance: ACYCLOVIR
     Dates: start: 20250312, end: 20250621
  3. VENTOLIN HFA [Concomitant]
     Active Substance: ALBUTEROL SULFATE
     Route: 065
  4. ASPIRIN [Concomitant]
     Active Substance: ASPIRIN
     Dates: start: 20250312, end: 20250621
  5. ATORVASTATIN [Concomitant]
     Active Substance: ATORVASTATIN
     Dates: start: 20240911, end: 20250621

REACTIONS (33)
  - Cardiogenic shock [Fatal]
  - Mitral valve incompetence [Fatal]
  - Chordae tendinae rupture [Fatal]
  - Cardiac valve vegetation [Fatal]
  - Acute coronary syndrome [Unknown]
  - Respiratory failure [Fatal]
  - Acute kidney injury [Fatal]
  - Acute myocardial infarction [Fatal]
  - Rhabdomyolysis [Fatal]
  - Chronic obstructive pulmonary disease [Fatal]
  - Ventricular tachycardia [Unknown]
  - Pneumonia [Fatal]
  - Anuria [Unknown]
  - Hyperkalaemia [Unknown]
  - Lactic acidosis [Unknown]
  - Acute kidney injury [Unknown]
  - Plasma cell myeloma [Fatal]
  - Hypertension [Fatal]
  - Hyperlipidaemia [Fatal]
  - Coronary artery disease [Fatal]
  - Hypothyroidism [Fatal]
  - Anaemia [Fatal]
  - Renal failure [Unknown]
  - Pulmonary oedema [Unknown]
  - Cardiac valve rupture [Unknown]
  - Dyspnoea [Unknown]
  - Fall [Unknown]
  - Asthenia [Unknown]
  - Dyspnoea [Unknown]
  - Cough [Unknown]
  - Oedema [Unknown]
  - Lung consolidation [Unknown]
  - Metabolic function test abnormal [Unknown]
